FAERS Safety Report 8511297-0 (Version None)
Quarter: 2012Q3

REPORT INFORMATION
  Report Type: 
  Country: None (occurrence: None)
  Receive Date: 20120716
  Receipt Date: 20120705
  Transmission Date: 20120928
  Serious: Yes (Hospitalization, Other)
  Sender: FDA-Public Use
  Company Number: CA-ELI_LILLY_AND_COMPANY-CA201207002455

PATIENT
  Age: 25 Year
  Sex: Male

DRUGS (4)
  1. CLOBAZAM [Concomitant]
  2. KEPPRA [Concomitant]
  3. MORPHINE SULFATE [Concomitant]
  4. FORTEO [Suspect]
     Indication: OSTEOPOROSIS
     Dosage: 20 UG, QD
     Route: 058
     Dates: start: 20110517, end: 20120704

REACTIONS (2)
  - FALL [None]
  - FEMUR FRACTURE [None]
